FAERS Safety Report 9170610 (Version 1)
Quarter: 2013Q1

REPORT INFORMATION
  Report Type: Spontaneous
  Country: US (occurrence: US)
  Receive Date: 20130319
  Receipt Date: 20130319
  Transmission Date: 20140127
  Serious: No
  Sender: FDA-Public Use
  Company Number: US-BAYER-2013-032369

PATIENT
  Age: 69 Year
  Sex: Female
  Weight: 63.49 kg

DRUGS (9)
  1. BETASERON [Suspect]
     Indication: MULTIPLE SCLEROSIS
     Dosage: 0.25 ML, QOD
     Route: 058
  2. BETASERON [Suspect]
     Indication: MULTIPLE SCLEROSIS
     Dosage: 0.5 ML, QOD
     Route: 058
  3. BETASERON [Suspect]
     Indication: MULTIPLE SCLEROSIS
     Dosage: 0.75 ML, QOD
     Route: 058
  4. BETASERON [Suspect]
     Indication: MULTIPLE SCLEROSIS
     Dosage: 1 ML, QOD
     Route: 058
  5. ZOLOFT [Concomitant]
     Dosage: 25 MG, UNK
  6. NIACIN [Concomitant]
     Dosage: 125 MG, TD
  7. VITAMIN D NOS [Concomitant]
     Dosage: 400 UNIT
  8. CALCIUM MAGNESIUM [Concomitant]
  9. HYDROCHLOROTHIAZID [Concomitant]
     Dosage: 25 MG, UNK

REACTIONS (1)
  - Oropharyngeal pain [Unknown]
